FAERS Safety Report 6622143-4 (Version None)
Quarter: 2010Q1

REPORT INFORMATION
  Report Type: 
  Country: None (occurrence: None)
  Receive Date: 20100304
  Receipt Date: 20100217
  Transmission Date: 20100710
  Serious: Yes (Life-Threatening, Hospitalization)
  Sender: FDA-Public Use
  Company Number: FR-JNJFOC-20100205702

PATIENT
  Age: 69 Year
  Sex: Female
  Weight: 50 kg

DRUGS (1)
  1. DECITABINE (DECITABINE) LYOPHILIZED POWDER [Suspect]
     Indication: CHRONIC MYELOMONOCYTIC LEUKAEMIA
     Dosage: 30 MG, IN 1 DAY, INTRAVENOUS
     Route: 042
     Dates: start: 20090420, end: 20090424

REACTIONS (10)
  - AORTIC ANEURYSM [None]
  - ARTERITIS [None]
  - DRUG INEFFECTIVE [None]
  - ERYTHROMELALGIA [None]
  - HAEMOGLOBIN DECREASED [None]
  - HYPERTHERMIA [None]
  - SPLENIC INFARCTION [None]
  - THROMBOCYTOSIS [None]
  - THROMBOSIS [None]
  - WHITE BLOOD CELL COUNT DECREASED [None]
